FAERS Safety Report 7897937-8 (Version None)
Quarter: 2011Q4

REPORT INFORMATION
  Report Type: 
  Country: None (occurrence: None)
  Receive Date: 20111103
  Receipt Date: 20111020
  Transmission Date: 20120403
  Serious: Yes (Hospitalization)
  Sender: FDA-Public Use
  Company Number: 1000024331

PATIENT
  Age: 94 Year
  Sex: Female

DRUGS (7)
  1. ZANTAC (RANITIDINE HYDROCHLORIDE) (TABLETS) (RANITIDINE HYDROCHLORIDE) [Concomitant]
  2. SISAAL (DEXTROMETHORPHAN HYDROBROMIDE) (TABLETS) (DEXTROMETHORPHAN HYD [Concomitant]
  3. AMLODIPINE [Concomitant]
  4. ARICEPT D (DONEPEZIL HYDROCHLORIDE) (DONEPEZIL HYDROCHLORIDE) [Concomitant]
  5. PEON (ZALTOPROFEN) (TABLETS) (ZALTOPROFEN) [Concomitant]
  6. MEMANTINE HYDROCHLORIDE [Suspect]
     Indication: DEMENTIA ALZHEIMER'S TYPE
     Dosage: 5 MG (5 MG,  1 IN 1 D) ,ORAL
     Route: 048
     Dates: start: 20110707, end: 20110713
  7. ANKISOL (AMBROXOL HYDROCHLORIDE) (TABLETS) (AMBROXOL HYDROCHLORIDE) [Concomitant]

REACTIONS (20)
  - ABASIA [None]
  - BLOOD POTASSIUM DECREASED [None]
  - CHONDROCALCINOSIS PYROPHOSPHATE [None]
  - CARDIAC FAILURE [None]
  - SOMNOLENCE [None]
  - SEDATION [None]
  - DECREASED APPETITE [None]
  - THROAT IRRITATION [None]
  - ARTHRALGIA [None]
  - PRODUCTIVE COUGH [None]
  - JOINT SWELLING [None]
  - ERYTHEMA [None]
  - ALTERED STATE OF CONSCIOUSNESS [None]
  - NASOPHARYNGITIS [None]
  - WHEEZING [None]
  - PYREXIA [None]
  - RALES [None]
  - HYPOXIA [None]
  - PAIN [None]
  - BLOOD SODIUM DECREASED [None]
